FAERS Safety Report 14315526 (Version 1)
Quarter: 2017Q4

REPORT INFORMATION
  Report Type: Report from Study
  Country: JP (occurrence: JP)
  Receive Date: 20171221
  Receipt Date: 20171221
  Transmission Date: 20180321
  Serious: Yes (Other)
  Sender: FDA-Public Use
  Company Number: JP-BAUSCH-BL-2017-035467

PATIENT
  Age: 62 Year
  Sex: Male

DRUGS (6)
  1. LUPRAC [Suspect]
     Active Substance: TORSEMIDE
     Indication: OEDEMA
     Route: 048
     Dates: start: 20170420
  2. RIFXIMA [Suspect]
     Active Substance: RIFAXIMIN
     Indication: HYPERAMMONAEMIA
     Route: 048
     Dates: start: 20170502, end: 20170530
  3. GLAKAY [Concomitant]
     Active Substance: MENATETRENONE
     Indication: OSTEOPOROSIS
     Route: 048
     Dates: start: 20170324, end: 20170519
  4. AMINOLEBAN [Concomitant]
     Active Substance: AMINO ACIDS
     Indication: HYPERAMMONAEMIA
     Route: 041
     Dates: start: 20170519
  5. LIVACT [Concomitant]
     Active Substance: AMINO ACIDS
     Indication: HYPOALBUMINAEMIA
     Route: 048
     Dates: start: 20121002
  6. ALDACTONE A [Concomitant]
     Active Substance: SPIRONOLACTONE
     Indication: OEDEMA
     Route: 048
     Dates: start: 20170307

REACTIONS (2)
  - C-reactive protein increased [Unknown]
  - Blood potassium decreased [Recovered/Resolved]

NARRATIVE: CASE EVENT DATE: 20170519
